FAERS Safety Report 5320661-2 (Version None)
Quarter: 2007Q2

REPORT INFORMATION
  Report Type: 
  Country: None (occurrence: None)
  Receive Date: 20070502
  Receipt Date: 20070416
  Transmission Date: 20071010
  Serious: Yes (Death, Hospitalization, Other)
  Sender: FDA-Public Use
  Company Number: 2007BI009302

PATIENT
  Sex: Female

DRUGS (1)
  1. AVONEX [Suspect]
     Indication: MULTIPLE SCLEROSIS
     Dates: start: 20050106

REACTIONS (16)
  - CARDIAC ARREST [None]
  - CENTRAL NERVOUS SYSTEM INFECTION [None]
  - DEHYDRATION [None]
  - GENERAL PHYSICAL HEALTH DETERIORATION [None]
  - GRAND MAL CONVULSION [None]
  - HEPATITIS [None]
  - HEPATOCELLULAR DAMAGE [None]
  - IMMUNE SYSTEM DISORDER [None]
  - MENINGITIS VIRAL [None]
  - MUSCLE TWITCHING [None]
  - PAIN [None]
  - PANCREATITIS [None]
  - PANIC ATTACK [None]
  - PROGRESSIVE MULTIFOCAL LEUKOENCEPHALOPATHY [None]
  - URINARY TRACT DISORDER [None]
  - WEIGHT DECREASED [None]
